FAERS Safety Report 14933815 (Version 1)
Quarter: 2018Q2

REPORT INFORMATION
  Report Type: Spontaneous
  Country: US (occurrence: US)
  Receive Date: 20180524
  Receipt Date: 20180524
  Transmission Date: 20180711
  Serious: No
  Sender: FDA-Public Use
  Company Number: US-TARO-2018TAR00099

PATIENT
  Age: 14 Month
  Sex: Male

DRUGS (4)
  1. FEVERALL INFANTS [Suspect]
     Active Substance: ACETAMINOPHEN
     Dosage: 80 MG, ONCE
     Route: 054
     Dates: start: 20180205, end: 20180205
  2. MOTRIN [Suspect]
     Active Substance: IBUPROFEN
     Indication: PYREXIA
     Dosage: UNK
     Dates: start: 20180205
  3. FEVERALL INFANTS [Suspect]
     Active Substance: ACETAMINOPHEN
     Indication: PYREXIA
     Dosage: 160 MG, UNK
     Route: 054
     Dates: start: 20180204, end: 20180205
  4. UNSPECIFIED ANTIBIOTIC [Concomitant]
     Active Substance: UNSPECIFIED INGREDIENT
     Dosage: UNK
     Dates: start: 20180201

REACTIONS (6)
  - Overdose [Not Recovered/Not Resolved]
  - Dyskinesia [Not Recovered/Not Resolved]
  - Drug ineffective [Not Recovered/Not Resolved]
  - Pyrexia [Recovering/Resolving]
  - Chills [Unknown]
  - Vomiting [Recovered/Resolved]

NARRATIVE: CASE EVENT DATE: 20180204
